FAERS Safety Report 5948782-1 (Version None)
Quarter: 2008Q4

REPORT INFORMATION
  Report Type: 
  Country: None (occurrence: None)
  Receive Date: 20081111
  Receipt Date: 20081104
  Transmission Date: 20090506
  Serious: Yes (Other)
  Sender: FDA-Public Use
  Company Number: FR-ROCHE-595494

PATIENT
  Age: 29 Year
  Sex: Female

DRUGS (1)
  1. ROCEPHIN [Suspect]
     Dosage: STRENGTH FORMULATION REPORTED: INJECTABLE SOLUTION.
     Route: 030

REACTIONS (1)
  - DYSKINESIA [None]
